FAERS Safety Report 20874715 (Version 2)
Quarter: 2022Q2

REPORT INFORMATION
  Report Type: Spontaneous
  Country: US (occurrence: None)
  Receive Date: 20220525
  Receipt Date: 20220628
  Transmission Date: 20220721
  Serious: No
  Sender: FDA-Public Use
  Company Number: 2022A188197

PATIENT
  Age: 1082 Month
  Sex: Male
  Weight: 86.2 kg

DRUGS (1)
  1. BEVESPI AEROSPHERE [Suspect]
     Active Substance: FORMOTEROL FUMARATE\GLYCOPYRROLATE
     Indication: Chronic obstructive pulmonary disease
     Dosage: 9/4.8 MCG, TWO INHALATIONS, TWICE DAILY
     Route: 055

REACTIONS (4)
  - Hypertension [Recovered/Resolved]
  - Device use issue [Recovered/Resolved]
  - Product dose omission issue [Unknown]
  - Drug delivery system issue [Unknown]

NARRATIVE: CASE EVENT DATE: 20220501
